FAERS Safety Report 10955267 (Version 1)
Quarter: 2015Q1

REPORT INFORMATION
  Report Type: Spontaneous
  Country: PL (occurrence: PL)
  Receive Date: 20150326
  Receipt Date: 20150326
  Transmission Date: 20150721
  Serious: Yes (Hospitalization, Other)
  Sender: FDA-Public Use
  Company Number: PL-ROCHE-1554009

PATIENT
  Age: 61 Year
  Sex: Female

DRUGS (3)
  1. TRAMAL [Concomitant]
     Active Substance: TRAMADOL
  2. KETONAL (POLAND) [Concomitant]
  3. ZELBORAF [Suspect]
     Active Substance: VEMURAFENIB
     Indication: MALIGNANT MELANOMA
     Route: 065
     Dates: start: 20130816, end: 20140626

REACTIONS (11)
  - Metastases to central nervous system [Unknown]
  - Dry skin [Unknown]
  - Palmar erythema [Unknown]
  - Erythema [Unknown]
  - Diabetes mellitus inadequate control [Recovering/Resolving]
  - Keratoacanthoma [Unknown]
  - Hyponatraemia [Recovering/Resolving]
  - Lymphoedema [Recovered/Resolved]
  - Rash maculo-papular [Unknown]
  - Pruritus [Unknown]
  - Lymphadenopathy [Unknown]

NARRATIVE: CASE EVENT DATE: 20140718
